FAERS Safety Report 10344748 (Version 3)
Quarter: 2014Q4

REPORT INFORMATION
  Report Type: Spontaneous
  Country: US (occurrence: None)
  Receive Date: 20140723
  Receipt Date: 20141114
  Transmission Date: 20150528
  Serious: Yes (Hospitalization, Other)
  Sender: FDA-Public Use
  Company Number: 2014VID00014

PATIENT
  Age: 46 Year
  Sex: Female

DRUGS (2)
  1. AMPICILLIN [Concomitant]
     Active Substance: AMPICILLIN
  2. ACTIMMUNE [Suspect]
     Active Substance: INTERFERON GAMMA-1B
     Indication: CHRONIC GRANULOMATOUS DISEASE
     Route: 058
     Dates: start: 201404, end: 201407

REACTIONS (20)
  - Iron deficiency [None]
  - Fatigue [None]
  - Neck mass [None]
  - Lymph gland infection [None]
  - Dizziness [None]
  - Nausea [None]
  - Burkholderia gladioli infection [None]
  - Cough [None]
  - Pain [None]
  - Anaemia of chronic disease [None]
  - Rash pruritic [None]
  - Infection [None]
  - Skin infection [None]
  - Necrotising granulomatous lymphadenitis [None]
  - Wound [None]
  - Acne [None]
  - Haemoptysis [None]
  - Tonsillitis [None]
  - Wound secretion [None]
  - Bacteraemia [None]

NARRATIVE: CASE EVENT DATE: 201404
